FAERS Safety Report 6221893-1 (Version None)
Quarter: 2009Q2

REPORT INFORMATION
  Report Type: 
  Country: None (occurrence: None)
  Receive Date: 20090608
  Receipt Date: 20090608
  Transmission Date: 20091009
  Serious: Yes (Death)
  Sender: FDA-Public Use
  Company Number: None

PATIENT
  Sex: Female
  Weight: 97.5234 kg

DRUGS (2)
  1. FENTANYL-50 [Suspect]
     Indication: ANALGESIA
     Dosage: 50 MCG X'1 INTRATHECAL
     Route: 037
     Dates: start: 20090521
  2. DURAMORF TM 0.5MG/10ML BAXTER [Suspect]
     Indication: ANALGESIA
     Dosage: 0.5MG X' 1 INTRATHECAL
     Route: 037
     Dates: start: 20090521

REACTIONS (5)
  - MENINGITIS BACTERIAL [None]
  - PUPIL FIXED [None]
  - RESPIRATORY DISORDER [None]
  - STREPTOCOCCAL INFECTION [None]
  - UNRESPONSIVE TO STIMULI [None]
